FAERS Safety Report 6552938-7 (Version None)
Quarter: 2010Q1

REPORT INFORMATION
  Report Type: 
  Country: None (occurrence: None)
  Receive Date: 20100122
  Receipt Date: 20100107
  Transmission Date: 20100710
  Serious: Yes (Life-Threatening, Hospitalization, Other)
  Sender: FDA-Public Use
  Company Number: 2010-00055

PATIENT
  Age: 79 Year
  Sex: Male

DRUGS (10)
  1. SIMVASTATIN [Suspect]
     Indication: DRUG USE FOR UNKNOWN INDICATION
  2. FLUCONAZOLE [Suspect]
     Indication: DRUG USE FOR UNKNOWN INDICATION
  3. LISINOPRIL [Concomitant]
  4. FOLIC ACID [Concomitant]
  5. GOSERELIN [Concomitant]
  6. INSULIN [Concomitant]
  7. MOMETASONE (INHALANT) [Concomitant]
  8. TERAZOSIN HCL [Concomitant]
  9. THIAMINE [Concomitant]
  10. TOLTERODINE TARTRATE [Concomitant]

REACTIONS (4)
  - CEREBRAL ATROPHY [None]
  - CEREBROVASCULAR ACCIDENT [None]
  - RENAL FAILURE ACUTE [None]
  - RHABDOMYOLYSIS [None]
